FAERS Safety Report 20340732 (Version 8)
Quarter: 2022Q2

REPORT INFORMATION
  Report Type: Spontaneous
  Country: CA (occurrence: CA)
  Receive Date: 20220117
  Receipt Date: 20220606
  Transmission Date: 20220721
  Serious: Yes (Other)
  Sender: FDA-Public Use
  Company Number: CA-PFIZER INC-2021318883

PATIENT
  Age: 74 Year
  Sex: Female
  Weight: 51 kg

DRUGS (14)
  1. TRAZIMERA [Suspect]
     Active Substance: TRASTUZUMAB-QYYP
     Indication: Breast cancer metastatic
     Dosage: 462 MG (8 MG/KG THEN 6 MG/KG) EVERY 3 WEEKS
     Route: 042
     Dates: start: 20210422
  2. TRAZIMERA [Suspect]
     Active Substance: TRASTUZUMAB-QYYP
     Dosage: 357 MG (8 MG/KG THEN 6 MG/KG) EVERY 3 WEEKS
     Route: 042
     Dates: start: 20210603
  3. TRAZIMERA [Suspect]
     Active Substance: TRASTUZUMAB-QYYP
     Dosage: 357 MG (8 MG/KG THEN 6 MG/KG) EVERY 3 WEEKS
     Route: 042
     Dates: start: 20210624
  4. TRAZIMERA [Suspect]
     Active Substance: TRASTUZUMAB-QYYP
     Dosage: 357 MG (8 MG/KG THEN 6 MG/KG) EVERY 3 WEEKS
     Route: 042
     Dates: start: 20210715
  5. TRAZIMERA [Suspect]
     Active Substance: TRASTUZUMAB-QYYP
     Dosage: 315 MG EVERY 3 WEEKS
     Route: 042
     Dates: start: 20210826
  6. TRAZIMERA [Suspect]
     Active Substance: TRASTUZUMAB-QYYP
     Dosage: 315 MG (6MG/KG), EVERY 3 WEEKS
     Route: 042
     Dates: start: 20210916
  7. TRAZIMERA [Suspect]
     Active Substance: TRASTUZUMAB-QYYP
     Dosage: 315 MG (6MG/KG), EVERY 3 WEEKS
     Route: 042
     Dates: start: 20211102
  8. TRAZIMERA [Suspect]
     Active Substance: TRASTUZUMAB-QYYP
     Dosage: 315 MG (6MG/KG), EVERY 3 WEEKS
     Route: 042
     Dates: start: 20211214
  9. TRAZIMERA [Suspect]
     Active Substance: TRASTUZUMAB-QYYP
     Dosage: 315 MG (6MG/KG), EVERY 3 WEEKS
     Route: 042
     Dates: start: 20220215
  10. TRAZIMERA [Suspect]
     Active Substance: TRASTUZUMAB-QYYP
     Dosage: 315 MG (6MG/KG), EVERY 3 WEEKS
     Route: 042
     Dates: start: 20220329
  11. TRAZIMERA [Suspect]
     Active Substance: TRASTUZUMAB-QYYP
     Dosage: 315 MG, EVERY 3 WEEKS
     Route: 042
     Dates: start: 20220510
  12. TRAZIMERA [Suspect]
     Active Substance: TRASTUZUMAB-QYYP
     Dosage: 315 MG, EVERY 3 WEEKS
     Route: 042
     Dates: start: 20220531
  13. HYDROCHLOROTHIAZIDE [Concomitant]
     Active Substance: HYDROCHLOROTHIAZIDE
     Dosage: 25 MG, DAILY
     Route: 048
  14. BACTERIOSTATIC WATER [Concomitant]
     Active Substance: WATER
     Dosage: 20 ML
     Dates: start: 20220531, end: 20220531

REACTIONS (18)
  - Tooth infection [Unknown]
  - Tooth abscess [Unknown]
  - Hypertension [Not Recovered/Not Resolved]
  - Weight decreased [Unknown]
  - Poor venous access [Recovered/Resolved]
  - Infusion site extravasation [Unknown]
  - Feeling abnormal [Unknown]
  - Body temperature decreased [Unknown]
  - Illness [Unknown]
  - Cough [Unknown]
  - Sneezing [Unknown]
  - Ageusia [Unknown]
  - Influenza like illness [Unknown]
  - Decreased appetite [Unknown]
  - Bone loss [Unknown]
  - COVID-19 [Unknown]
  - Blood pressure systolic abnormal [Unknown]
  - Product dose omission issue [Unknown]

NARRATIVE: CASE EVENT DATE: 20210422
